FAERS Safety Report 9298955 (Version 1)
Quarter: 2013Q2

REPORT INFORMATION
  Report Type: Spontaneous
  Country: US (occurrence: US)
  Receive Date: 20130520
  Receipt Date: 20130520
  Transmission Date: 20140414
  Serious: Yes (Hospitalization)
  Sender: FDA-Public Use
  Company Number: US-SANOFI-AVENTIS-2013SA001170

PATIENT
  Age: 36 Year
  Sex: Female
  Weight: 87.54 kg

DRUGS (8)
  1. APIDRA [Suspect]
     Indication: TYPE 1 DIABETES MELLITUS
     Dosage: CONSTANT RELEASE OF INSULIN (1-1.5 UNITS) THROUGHOUT THE DAY
     Route: 058
  2. APIDRA [Suspect]
     Indication: TYPE 1 DIABETES MELLITUS
     Dosage: CONSTANT RELEASE OF INSULIN (1-1.5 UNITS) THROUGHOUT THE DAY
     Route: 058
     Dates: start: 20130102, end: 20130103
  3. APIDRA [Suspect]
     Indication: TYPE 1 DIABETES MELLITUS
     Dosage: CONSTANT RELEASE OF INSULIN (1-1.5 UNITS) THROUGHOUT THE DAY
     Route: 058
     Dates: start: 20130104, end: 20130105
  4. APIDRA [Suspect]
     Indication: TYPE 1 DIABETES MELLITUS
     Dosage: CONSTANT RELEASE OF INSULIN (1-1.5 UNITS) THROUGHOUT THE DAY
     Route: 058
     Dates: start: 20130105
  5. BUPROPION [Concomitant]
  6. LEVOTHYROXINE [Concomitant]
  7. FOLIC ACID [Concomitant]
  8. PHENTERMINE [Concomitant]

REACTIONS (5)
  - Hyperglycaemia [Not Recovered/Not Resolved]
  - Drug ineffective [Not Recovered/Not Resolved]
  - Blood glucose decreased [Unknown]
  - Hyperglycaemia [Not Recovered/Not Resolved]
  - Drug ineffective [Not Recovered/Not Resolved]
